FAERS Safety Report 23188565 (Version 2)
Quarter: 2023Q4

REPORT INFORMATION
  Report Type: Spontaneous
  Country: US (occurrence: US)
  Receive Date: 20231115
  Receipt Date: 20231207
  Transmission Date: 20240109
  Serious: No
  Sender: FDA-Public Use
  Company Number: US-PFIZER INC-202300369316

PATIENT
  Age: 46 Year
  Sex: Female

DRUGS (1)
  1. XELJANZ XR [Suspect]
     Active Substance: TOFACITINIB CITRATE
     Indication: Rheumatoid arthritis
     Dosage: 11 MG, 1X/DAY
     Route: 048

REACTIONS (5)
  - Condition aggravated [Unknown]
  - Sensitivity to weather change [Unknown]
  - Neuroma [Unknown]
  - Pain in extremity [Unknown]
  - Influenza [Unknown]
